FAERS Safety Report 9626085 (Version 6)
Quarter: 2014Q1

REPORT INFORMATION
  Report Type: Report from Study
  Country: GB (occurrence: GB)
  Receive Date: 20131016
  Receipt Date: 20140124
  Transmission Date: 20141002
  Serious: Yes (Other)
  Sender: FDA-Public Use
  Company Number: GB-BAYER-2013-080257

PATIENT
  Age: 63 Year
  Sex: Male
  Weight: 69.4 kg

DRUGS (2)
  1. REGORAFENIB [Suspect]
     Indication: COLORECTAL CANCER METASTATIC
     Dosage: 160 MG, TOTAL DAILY DOSE
     Route: 048
     Dates: start: 20130130, end: 20130219
  2. REGORAFENIB [Suspect]
     Indication: COLORECTAL CANCER METASTATIC
     Dosage: 160 MG, TOTAL DAILY DOSE
     Route: 048
     Dates: start: 20130303, end: 20130313

REACTIONS (2)
  - Pneumatosis intestinalis [Not Recovered/Not Resolved]
  - Ascites [Not Recovered/Not Resolved]
